FAERS Safety Report 8675775 (Version 2)
Quarter: 2012Q4

REPORT INFORMATION
  Report Type: Report from Study
  Country: US (occurrence: US)
  Receive Date: 20120720
  Receipt Date: 20120910
  Transmission Date: 20130627
  Serious: Yes (Other)
  Sender: FDA-Public Use
  Company Number: US-ROCHE-1088100

PATIENT
  Sex: Male
  Weight: 70.37 kg

DRUGS (1)
  1. VISMODEGIB [Suspect]
     Indication: BASAL CELL CARCINOMA
     Route: 048
     Dates: start: 20120326, end: 20120606

REACTIONS (8)
  - Renal impairment [Unknown]
  - Glomerular filtration rate decreased [Unknown]
  - Weight decreased [Unknown]
  - Muscle spasms [Unknown]
  - Dysgeusia [Unknown]
  - Alopecia [Unknown]
  - Abdominal pain upper [Unknown]
  - Dehydration [Unknown]
